FAERS Safety Report 5769856-4 (Version None)
Quarter: 2008Q2

REPORT INFORMATION
  Report Type: 
  Country: None (occurrence: None)
  Receive Date: 20080613
  Receipt Date: 20080411
  Transmission Date: 20081010
  Serious: No
  Sender: FDA-Public Use
  Company Number: US-ABBOTT-08P-163-0446792-00

PATIENT
  Sex: Female

DRUGS (1)
  1. HUMIRA [Suspect]
     Indication: RHEUMATOID ARTHRITIS
     Route: 058
     Dates: start: 20060101, end: 20080301

REACTIONS (5)
  - DYSPHONIA [None]
  - FALL [None]
  - INTERVERTEBRAL DISC PROTRUSION [None]
  - PAIN [None]
  - RESPIRATORY TRACT CONGESTION [None]
